FAERS Safety Report 25646357 (Version 1)
Quarter: 2025Q3

REPORT INFORMATION
  Report Type: Spontaneous
  Country: US (occurrence: US)
  Receive Date: 20250805
  Receipt Date: 20250805
  Transmission Date: 20251020
  Serious: Yes (Hospitalization, Other)
  Sender: ELI LILLY AND COMPANY
  Company Number: US-ELI_LILLY_AND_COMPANY-US202507024693

PATIENT
  Sex: Female

DRUGS (4)
  1. ADCIRCA [Suspect]
     Active Substance: TADALAFIL
     Indication: Product used for unknown indication
     Route: 065
  2. AMBRISENTAN [Suspect]
     Active Substance: AMBRISENTAN
     Indication: Pulmonary arterial hypertension
     Dosage: 10 MG, DAILY
     Route: 048
     Dates: start: 20220411
  3. REMODULIN [Suspect]
     Active Substance: TREPROSTINIL
     Indication: Product used for unknown indication
     Route: 065
     Dates: start: 20250702
  4. UPTRAVI [Suspect]
     Active Substance: SELEXIPAG
     Indication: Product used for unknown indication
     Route: 065
     Dates: end: 20250701

REACTIONS (1)
  - Pulmonary hypertension [Unknown]

NARRATIVE: CASE EVENT DATE: 20250702
